FAERS Safety Report 5916790-2 (Version None)
Quarter: 2008Q4

REPORT INFORMATION
  Report Type: 
  Country: None (occurrence: None)
  Receive Date: 20081013
  Receipt Date: 20081001
  Transmission Date: 20090506
  Serious: Yes (Other)
  Sender: FDA-Public Use
  Company Number: JP-PFIZER INC-2008071963

PATIENT
  Sex: Male
  Weight: 56.7 kg

DRUGS (13)
  1. VFEND [Suspect]
     Indication: ASPERGILLOSIS
     Dosage: DAILY DOSE:200MG
     Route: 042
     Dates: start: 20080503, end: 20080514
  2. VFEND [Suspect]
     Dosage: DAILY DOSE:600MG
     Route: 048
     Dates: start: 20080515, end: 20080521
  3. COTRIM [Concomitant]
     Route: 048
  4. PREDONINE [Concomitant]
     Indication: CYCLIC NEUTROPENIA
     Route: 048
  5. THYRADIN [Concomitant]
     Indication: HYPOTHYROIDISM
     Route: 048
  6. TAKEPRON [Concomitant]
     Indication: GASTRODUODENAL ULCER
     Route: 048
  7. URSO 250 [Concomitant]
     Indication: HEPATITIS C
     Route: 048
  8. ALENDRONATE SODIUM [Concomitant]
     Indication: OSTEOPOROSIS
     Route: 048
  9. DIART [Concomitant]
     Indication: OEDEMA
     Route: 048
  10. ALDACTONE [Concomitant]
     Indication: OEDEMA
     Route: 048
  11. MAGNESIUM OXIDE [Concomitant]
     Indication: CONSTIPATION
     Route: 048
  12. AMBISOME [Concomitant]
     Route: 042
     Dates: start: 20080428, end: 20080502
  13. INTERFERON [Concomitant]

REACTIONS (1)
  - DYSKINESIA [None]
